FAERS Safety Report 9290650 (Version 1)
Quarter: 2013Q2

REPORT INFORMATION
  Report Type: Spontaneous
  Country: GB (occurrence: GB)
  Receive Date: 20130515
  Receipt Date: 20130515
  Transmission Date: 20140414
  Serious: Yes (Death, Other)
  Sender: FDA-Public Use
  Company Number: GB-PFIZER INC-2013148684

PATIENT
  Age: 52 Year
  Sex: Male
  Weight: 69.85 kg

DRUGS (1)
  1. CHAMPIX [Suspect]
     Indication: SMOKING CESSATION THERAPY
     Dosage: UNK
     Route: 048

REACTIONS (10)
  - Completed suicide [Fatal]
  - Suicide attempt [Unknown]
  - Suicidal ideation [Unknown]
  - Depressed mood [Unknown]
  - Crying [Unknown]
  - Mood swings [Unknown]
  - Feeling of despair [Unknown]
  - Anxiety [Unknown]
  - Fear [Unknown]
  - Anger [Unknown]
